FAERS Safety Report 6539062-4 (Version None)
Quarter: 2010Q1

REPORT INFORMATION
  Report Type: 
  Country: None (occurrence: None)
  Receive Date: 20100115
  Receipt Date: 20100106
  Transmission Date: 20100710
  Serious: Yes (Hospitalization, Other)
  Sender: FDA-Public Use
  Company Number: PHEH2008US05867

PATIENT
  Sex: Female

DRUGS (29)
  1. ZELNORM [Suspect]
     Dosage: 6 MG, BID
     Route: 048
  2. NEURONTIN [Concomitant]
     Dosage: 100 MG, TWO TABLETS BID
     Route: 048
  3. LASIX [Concomitant]
     Dosage: 40 MG, UNK
     Route: 048
  4. ASPIRIN [Concomitant]
     Dosage: 81 MG, DAILY
     Route: 048
  5. PREVACID [Concomitant]
  6. PRINIVIL [Concomitant]
  7. NITROGLYCERIN [Concomitant]
     Dosage: UNK
  8. POTASSIUM CHLORIDE [Concomitant]
     Dosage: 8 MEQ, TID
     Route: 048
  9. CARTIA XT [Concomitant]
     Dosage: 180 MG, QHS
     Route: 048
  10. PLAVIX [Concomitant]
     Dosage: 75 MG, DAILY
     Route: 048
  11. BISACODYL [Concomitant]
  12. VERELAN [Concomitant]
     Dosage: 180 MG, DAILY
  13. GLYBURIDE [Concomitant]
     Dosage: 5 MG, UNK
  14. NIACIN [Concomitant]
  15. ZETIA [Concomitant]
  16. POLICOSANOL [Concomitant]
     Dosage: 10 MG, DAILY
     Route: 048
  17. FERRITIN [Concomitant]
  18. TOPROL-XL [Concomitant]
     Dosage: 25 MG, DAILY
  19. ZELNORM                                 /CAN/ [Concomitant]
     Dosage: UNK
  20. SYNTHROID [Concomitant]
     Dosage: 7.5 MG, DAILY
  21. OMACOR                             /01403701/ [Concomitant]
  22. METOPROLOL [Concomitant]
     Dosage: 25 UNK, DAILY
  23. COREG [Concomitant]
     Dosage: 3.125 MG, BID
  24. ANSAID [Concomitant]
     Dosage: 100 MG, BID
  25. LISINOPRIL [Concomitant]
     Dosage: 2.5 MG, UNK
  26. NIACIN [Concomitant]
     Dosage: 1000 MG, DAILY
     Route: 048
  27. ZETIA [Concomitant]
     Dosage: 10 MG, DAILY
     Route: 048
  28. FISH OIL [Concomitant]
     Dosage: 1000 MG, TID
     Route: 048
  29. VERAPAMIL [Concomitant]

REACTIONS (8)
  - ANAEMIA [None]
  - ANGINA UNSTABLE [None]
  - CHEST PAIN [None]
  - CORONARY ARTERY OCCLUSION [None]
  - HEPATIC STEATOSIS [None]
  - INJURY [None]
  - STENT PLACEMENT [None]
  - VENOUS STENOSIS [None]
